FAERS Safety Report 5647056-6 (Version None)
Quarter: 2008Q1

REPORT INFORMATION
  Report Type: 
  Country: None (occurrence: None)
  Receive Date: 20080303
  Receipt Date: 20080222
  Transmission Date: 20080703
  Serious: Yes (Hospitalization, Other)
  Sender: FDA-Public Use
  Company Number: GB-JNJFOC-20080205392

PATIENT
  Sex: Female
  Weight: 66 kg

DRUGS (10)
  1. REMICADE [Suspect]
     Indication: RHEUMATOID ARTHRITIS
     Route: 042
  2. METHOTREXATE [Concomitant]
  3. PREDNISOLONE [Concomitant]
  4. CO-PROXAMOL [Concomitant]
  5. FOLIC ACID [Concomitant]
  6. LIVIAL [Concomitant]
  7. LOSEC I.V. [Concomitant]
  8. VIOXX [Concomitant]
  9. ATENOLOL [Concomitant]
  10. DIDRONEL [Concomitant]

REACTIONS (2)
  - BRONCHIECTASIS [None]
  - PNEUMONIA [None]
